FAERS Safety Report 7528062-3 (Version None)
Quarter: 2011Q2

REPORT INFORMATION
  Report Type: 
  Country: None (occurrence: None)
  Receive Date: 20110531
  Receipt Date: 20110516
  Transmission Date: 20111010
  Serious: Yes (Other)
  Sender: FDA-Public Use
  Company Number: 2011P1006346

PATIENT
  Sex: Female

DRUGS (3)
  1. ASPIRIN [Concomitant]
  2. DEXEDRINE [Suspect]
     Dosage: 15 MG, QD, PO
     Route: 048
     Dates: start: 19730101, end: 19800101
  3. DEXEDRINE [Suspect]
     Dosage: 15 MG, QD, PO
     Route: 048
     Dates: start: 19880101, end: 20110501

REACTIONS (9)
  - ACTIVITIES OF DAILY LIVING IMPAIRED [None]
  - REACTION TO DRUG EXCIPIENTS [None]
  - CONSTIPATION [None]
  - MEMORY IMPAIRMENT [None]
  - APHASIA [None]
  - COGNITIVE DISORDER [None]
  - CYST [None]
  - ROAD TRAFFIC ACCIDENT [None]
  - THINKING ABNORMAL [None]
